FAERS Safety Report 6075281-1 (Version None)
Quarter: 2009Q1

REPORT INFORMATION
  Report Type: 
  Country: None (occurrence: None)
  Receive Date: 20090212
  Receipt Date: 20090202
  Transmission Date: 20090719
  Serious: Yes (Hospitalization)
  Sender: FDA-Public Use
  Company Number: FR-EISAI MEDIAL RESEARCH-E3810-02536-SPO-FR

PATIENT
  Sex: Female

DRUGS (4)
  1. PARIET (RABEPRAZOLE) [Suspect]
     Indication: GASTROOESOPHAGEAL REFLUX DISEASE
     Route: 048
     Dates: start: 20000101, end: 20080101
  2. MOPRAL [Suspect]
     Dosage: UNKNOWN
     Route: 048
     Dates: start: 19980101
  3. INIPOMP [Suspect]
     Dosage: UNKNOWN
     Route: 048
     Dates: start: 20000101
  4. LANZOR [Suspect]
     Dosage: UNKNOWN
     Route: 048
     Dates: start: 20000101

REACTIONS (8)
  - ARTHRALGIA [None]
  - DYSURIA [None]
  - FOOD ALLERGY [None]
  - GASTROINTESTINAL DISORDER [None]
  - MUSCLE SPASMS [None]
  - SICCA SYNDROME [None]
  - URINARY TRACT INFECTION [None]
  - VERTIGO [None]
